FAERS Safety Report 7521956-4 (Version None)
Quarter: 2011Q2

REPORT INFORMATION
  Report Type: 
  Country: None (occurrence: None)
  Receive Date: 20110603
  Receipt Date: 20110519
  Transmission Date: 20111010
  Serious: No
  Sender: FDA-Public Use
  Company Number: US-B.I. PHARMACEUTICALS,INC./RIDGEFIELD-2011-BP-13425BP

PATIENT
  Age: 78 Year
  Sex: Male

DRUGS (6)
  1. PRADAXA [Suspect]
     Indication: ATRIAL FLUTTER
     Dosage: 300 MG
     Route: 048
     Dates: start: 20110514
  2. ATENOLOL [Concomitant]
     Indication: HYPERTENSION
     Dosage: 100 MG
  3. MELOXICAM [Concomitant]
     Indication: ARTHRALGIA
  4. PRADAXA [Suspect]
     Indication: ATRIAL FIBRILLATION
  5. ZOCOR [Concomitant]
     Indication: BLOOD CHOLESTEROL INCREASED
     Dosage: 40 MG
  6. NIASPAN [Concomitant]
     Dosage: 500 MG

REACTIONS (5)
  - HEADACHE [None]
  - FLATULENCE [None]
  - DIZZINESS [None]
  - ASTHENIA [None]
  - WEIGHT INCREASED [None]
